FAERS Safety Report 24334230 (Version 2)
Quarter: 2024Q4

REPORT INFORMATION
  Report Type: Spontaneous
  Country: US (occurrence: US)
  Receive Date: 20240918
  Receipt Date: 20241010
  Transmission Date: 20250115
  Serious: No
  Sender: ASTELLAS
  Company Number: US-ASTELLAS-2024-AER-005439

PATIENT
  Age: 72 Year
  Sex: Male

DRUGS (2)
  1. VEOZAH [Suspect]
     Active Substance: FEZOLINETANT
     Indication: Hot flush
     Route: 065
     Dates: start: 20240830, end: 2024
  2. VEOZAH [Suspect]
     Active Substance: FEZOLINETANT
     Route: 065
     Dates: start: 2024

REACTIONS (3)
  - Insomnia [Unknown]
  - Off label use [Unknown]
  - Intentional product use issue [Unknown]
